FAERS Safety Report 9422074 (Version 1)
Quarter: 2013Q3

REPORT INFORMATION
  Report Type: Report from Study
  Country: FR (occurrence: FR)
  Receive Date: 20130726
  Receipt Date: 20130726
  Transmission Date: 20140515
  Serious: Yes (Disabling, Other)
  Sender: FDA-Public Use
  Company Number: FR-BAYER-2013-085832

PATIENT
  Age: 62 Year
  Sex: Male

DRUGS (3)
  1. REGORAFENIB [Suspect]
     Indication: COLORECTAL CANCER METASTATIC
     Dosage: 160 MG, QD
     Route: 048
     Dates: start: 20130611, end: 20130625
  2. REGORAFENIB [Suspect]
     Indication: COLORECTAL CANCER METASTATIC
     Dosage: 120 MG/D
     Dates: start: 20130718, end: 201307
  3. ESIDREX [Concomitant]

REACTIONS (9)
  - Renal failure acute [None]
  - Anal abscess [Recovered/Resolved]
  - Post procedural haematuria [Recovered/Resolved]
  - Hemiparesis [Not Recovered/Not Resolved]
  - Hypertension [Not Recovered/Not Resolved]
  - Anaemia [Not Recovered/Not Resolved]
  - Hypertension [Recovered/Resolved]
  - Hypercreatinaemia [Not Recovered/Not Resolved]
  - Myalgia [Not Recovered/Not Resolved]
